FAERS Safety Report 4356941-7 (Version None)
Quarter: 2004Q2

REPORT INFORMATION
  Report Type: 
  Country: None (occurrence: None)
  Receive Date: 20040507
  Receipt Date: 20040421
  Transmission Date: 20050107
  Serious: Yes (Other)
  Sender: FDA-Public Use
  Company Number: USA040465535

PATIENT
  Age: 7 Year
  Sex: Female
  Weight: 23 kg

DRUGS (3)
  1. STRATTERA [Suspect]
     Indication: ATTENTION DEFICIT/HYPERACTIVITY DISORDER
     Dosage: 18 MG/1 AT BEDTIME
     Dates: start: 20040418
  2. TOPAMA (TOPIRAMATE) [Concomitant]
  3. PHENOBARBITAL TAB [Concomitant]

REACTIONS (1)
  - GRAND MAL CONVULSION [None]
